FAERS Safety Report 5061159-9 (Version None)
Quarter: 2006Q3

REPORT INFORMATION
  Report Type: 
  Country: None (occurrence: None)
  Receive Date: 20060720
  Receipt Date: 20060712
  Transmission Date: 20061208
  Serious: Yes (Hospitalization)
  Sender: FDA-Public Use
  Company Number: 06-0079FS

PATIENT
  Age: 50 Year
  Sex: Female

DRUGS (3)
  1. NITROFURANTOIN [Suspect]
     Indication: URINARY TRACT INFECTION
     Dosage: 100 MG, QD, PO
     Route: 048
  2. ESTRADIOL VAGINAL CREAM [Concomitant]
  3. NICOTINE LOZENGES [Concomitant]

REACTIONS (6)
  - ASTHENIA [None]
  - CHILLS [None]
  - HYPOTENSION [None]
  - NAUSEA [None]
  - PNEUMONIA [None]
  - VOMITING [None]
